FAERS Safety Report 14856004 (Version 2)
Quarter: 2018Q2

REPORT INFORMATION
  Report Type: Report from Study
  Country: AR (occurrence: AR)
  Receive Date: 20180507
  Receipt Date: 20180529
  Transmission Date: 20180711
  Serious: Yes (Death)
  Sender: FDA-Public Use
  Company Number: AR-ACTELION-A-US2018-171820

PATIENT
  Age: 63 Year
  Sex: Female

DRUGS (1)
  1. VENTAVIS [Suspect]
     Active Substance: ILOPROST
     Indication: PULMONARY HYPERTENSION
     Dosage: 2.5 MCG, UNK
     Route: 055
     Dates: start: 20130912, end: 20180312

REACTIONS (1)
  - Death [Fatal]

NARRATIVE: CASE EVENT DATE: 20180312
